FAERS Safety Report 9709772 (Version 2)
Quarter: 2013Q4

REPORT INFORMATION
  Report Type: Spontaneous
  Country: DE (occurrence: DE)
  Receive Date: 20131126
  Receipt Date: 20131126
  Transmission Date: 20140711
  Serious: Yes (Hospitalization)
  Sender: FDA-Public Use
  Company Number: DE-BRISTOL-MYERS SQUIBB COMPANY-19472422

PATIENT
  Age: 78 Year
  Sex: Female

DRUGS (3)
  1. ABILIFY [Suspect]
     Indication: ANXIETY
     Dates: start: 20130114
  2. SIMVASTATIN [Concomitant]
  3. JANUVIA [Concomitant]
     Indication: DIABETES MELLITUS
     Route: 048

REACTIONS (5)
  - Blood glucose increased [Unknown]
  - Renal failure [Unknown]
  - Hallucination [Unknown]
  - Apathy [Unknown]
  - Blood pressure increased [Unknown]
